FAERS Safety Report 8481138-9 (Version None)
Quarter: 2012Q3

REPORT INFORMATION
  Report Type: 
  Country: None (occurrence: None)
  Receive Date: 20120702
  Receipt Date: 20120627
  Transmission Date: 20120928
  Serious: No
  Sender: FDA-Public Use
  Company Number: PHEH2012US011403

PATIENT
  Sex: Female
  Weight: 103.86 kg

DRUGS (1)
  1. GILENYA [Suspect]
     Indication: MULTIPLE SCLEROSIS
     Dosage: 0.5 MG, QD
     Route: 048
     Dates: start: 20120516

REACTIONS (9)
  - BALANCE DISORDER [None]
  - GAIT DISTURBANCE [None]
  - VISION BLURRED [None]
  - BACK PAIN [None]
  - DECREASED APPETITE [None]
  - DRY SKIN [None]
  - TACHYCARDIA [None]
  - URTICARIA [None]
  - ALOPECIA [None]
